FAERS Safety Report 13499692 (Version 2)
Quarter: 2017Q2

REPORT INFORMATION
  Report Type: Spontaneous
  Country: US (occurrence: US)
  Receive Date: 20170501
  Receipt Date: 20170512
  Transmission Date: 20170830
  Serious: Yes (Hospitalization, Other)
  Sender: FDA-Public Use
  Company Number: US-ALLERGAN-1716332US

PATIENT
  Age: 78 Year
  Sex: Female

DRUGS (6)
  1. HUMALOG [Concomitant]
     Active Substance: INSULIN LISPRO
     Indication: DIABETES MELLITUS
     Dosage: UNK
  2. LANTUS [Concomitant]
     Active Substance: INSULIN GLARGINE
     Indication: DIABETES MELLITUS
     Dosage: UNK
  3. ASPIRIN. [Concomitant]
     Active Substance: ASPIRIN
     Dosage: 325 MG, QD
     Route: 048
  4. ENALAPRIL [Concomitant]
     Active Substance: ENALAPRIL
     Indication: HYPERTENSION
     Dosage: UNK
  5. NAMZARIC [Suspect]
     Active Substance: DONEPEZIL HYDROCHLORIDE\MEMANTINE HYDROCHLORIDE
     Indication: DEMENTIA
     Dosage: 10 MG, ONE PILL EVERY NIGHT
     Route: 048
     Dates: start: 201704
  6. SIMVASTATIN. [Concomitant]
     Active Substance: SIMVASTATIN
     Indication: BLOOD CHOLESTEROL ABNORMAL
     Dosage: UNK

REACTIONS (1)
  - Transient ischaemic attack [Unknown]

NARRATIVE: CASE EVENT DATE: 20170419
